FAERS Safety Report 9119433 (Version 1)
Quarter: 2013Q1

REPORT INFORMATION
  Report Type: Spontaneous
  Country: US (occurrence: US)
  Receive Date: 20130207
  Receipt Date: 20130207
  Transmission Date: 20140127
  Serious: No
  Sender: FDA-Public Use
  Company Number: US-ASTRAZENECA-2013SE04345

PATIENT
  Age: 68 Year
  Sex: Male
  Weight: 90.7 kg

DRUGS (7)
  1. NEXIUM [Suspect]
     Route: 048
     Dates: start: 2008, end: 2012
  2. PROTONIX [Suspect]
     Route: 065
  3. NAPROXEN [Concomitant]
     Indication: ARTHRITIS
  4. GENERIC EFFEXOR [Concomitant]
     Indication: DEPRESSION
  5. RESTORIL [Concomitant]
     Indication: SLEEP DISORDER
  6. CIALIS [Concomitant]
     Indication: AFFECTIVE DISORDER
  7. GENERIC NORVASC [Concomitant]
     Indication: BLOOD PRESSURE

REACTIONS (4)
  - Gastric disorder [Unknown]
  - Ulcer [Unknown]
  - Oesophageal disorder [Unknown]
  - Intentional drug misuse [Unknown]
